FAERS Safety Report 8999257 (Version 1)
Quarter: 2013Q1

REPORT INFORMATION
  Report Type: Spontaneous
  Country: US (occurrence: US)
  Receive Date: 20130103
  Receipt Date: 20130103
  Transmission Date: 20140127
  Serious: Yes (Hospitalization)
  Sender: FDA-Public Use
  Company Number: US-PFIZER INC-2013001524

PATIENT
  Age: 60 Year
  Sex: Female
  Weight: 78.01 kg

DRUGS (3)
  1. LYRICA [Suspect]
     Indication: NEUROPATHY PERIPHERAL
     Dosage: 150MG IN THE MORNING, 150MG IN THE AFTERNOON AND 300MG AT NIGHT
  2. COUMADIN [Concomitant]
     Indication: CEREBROVASCULAR ACCIDENT
     Dosage: 5MG DAILY (FOUR DAYS A WEEK)
  3. COUMADIN [Concomitant]
     Dosage: 7.5MG DAILY (THREE DAYS A WEEK)

REACTIONS (1)
  - Peripheral arterial occlusive disease [Unknown]
